FAERS Safety Report 7493636-5 (Version None)
Quarter: 2011Q2

REPORT INFORMATION
  Report Type: 
  Country: None (occurrence: None)
  Receive Date: 20110520
  Receipt Date: 20110507
  Transmission Date: 20111010
  Serious: Yes (Other)
  Sender: FDA-Public Use
  Company Number: ES-JNJFOC-20110504671

PATIENT
  Age: 13 Year
  Sex: Female

DRUGS (2)
  1. INFLIXIMAB, RECOMBINANT [Suspect]
     Route: 042
  2. INFLIXIMAB, RECOMBINANT [Suspect]
     Indication: PUSTULAR PSORIASIS
     Route: 042

REACTIONS (5)
  - INFUSION RELATED REACTION [None]
  - RESPIRATORY DISTRESS [None]
  - HYPERTENSION [None]
  - DRUG INEFFECTIVE [None]
  - CHEST PAIN [None]
